FAERS Safety Report 7558482-2 (Version None)
Quarter: 2011Q2

REPORT INFORMATION
  Report Type: 
  Country: None (occurrence: None)
  Receive Date: 20110620
  Receipt Date: 20110617
  Transmission Date: 20111010
  Serious: Yes (Other)
  Sender: FDA-Public Use
  Company Number: IT-MERCK-1106ITA00025

PATIENT
  Age: 53 Year
  Sex: Female

DRUGS (1)
  1. VYTORIN [Suspect]
     Indication: HYPERCHOLESTEROLAEMIA
     Route: 048
     Dates: start: 20101004, end: 20101102

REACTIONS (3)
  - MYALGIA [None]
  - MOVEMENT DISORDER [None]
  - PAIN IN EXTREMITY [None]
